FAERS Safety Report 19005070 (Version 1)
Quarter: 2021Q1

REPORT INFORMATION
  Report Type: Report from Study
  Country: PT (occurrence: PT)
  Receive Date: 20210312
  Receipt Date: 20210312
  Transmission Date: 20210420
  Serious: Yes (Hospitalization, Other)
  Sender: FDA-Public Use
  Company Number: 2021MYSCI0100001

PATIENT
  Age: 45 Year
  Sex: Female
  Weight: 76 kg

DRUGS (4)
  1. ALPRAZOLAM. [Concomitant]
     Active Substance: ALPRAZOLAM
     Indication: ANXIETY DISORDER
     Dosage: 0.25 MILLIGRAM, TID
     Route: 065
     Dates: start: 2015
  2. IBUPROFEN. [Concomitant]
     Active Substance: IBUPROFEN
     Indication: ENDOMETRIOSIS
     Dosage: 400 MILLIGRAM, PRN
     Route: 048
  3. 1.0 MG ESTRADIOL / 0.5 MG NORETHINDRONE ACETATE [Suspect]
     Active Substance: ESTRADIOL\NORETHINDRONE ACETATE
     Indication: ENDOMETRIOSIS
     Dosage: 1 DOSAGE FORM, QD
     Route: 048
     Dates: start: 20190612
  4. RELUGOLIX. [Suspect]
     Active Substance: RELUGOLIX
     Indication: ENDOMETRIOSIS
     Dosage: 40 MILLIGRAM, QD
     Route: 048
     Dates: start: 20190612

REACTIONS (1)
  - Ovarian cyst [Recovered/Resolved]

NARRATIVE: CASE EVENT DATE: 20201229
